FAERS Safety Report 6413627-2 (Version None)
Quarter: 2009Q4

REPORT INFORMATION
  Report Type: 
  Country: None (occurrence: None)
  Receive Date: 20091026
  Receipt Date: 20091015
  Transmission Date: 20100525
  Serious: Yes (Other)
  Sender: FDA-Public Use
  Company Number: US-ASTRAZENECA-2009SE20366

PATIENT
  Age: 69 Year
  Sex: Female
  Weight: 87.5 kg

DRUGS (9)
  1. NEXIUM [Suspect]
     Indication: GASTROOESOPHAGEAL REFLUX DISEASE
     Route: 048
  2. NEXIUM [Suspect]
     Route: 048
     Dates: start: 20090801
  3. PRILOSEC [Suspect]
     Route: 048
  4. LIPITOR [Concomitant]
  5. METOPROLOL [Concomitant]
  6. SINGULAIR [Concomitant]
  7. NASACORT [Concomitant]
  8. TRAZODONE HCL [Concomitant]
     Indication: FIBROMYALGIA
  9. CLONAZEPAM [Concomitant]
     Indication: FIBROMYALGIA

REACTIONS (4)
  - ABDOMINAL DISTENSION [None]
  - DRUG INEFFECTIVE [None]
  - FLATULENCE [None]
  - GASTRIC NEOPLASM [None]
